FAERS Safety Report 4815911-2 (Version None)
Quarter: 2005Q4

REPORT INFORMATION
  Report Type: 
  Country: None (occurrence: None)
  Receive Date: 20051031
  Receipt Date: 20051020
  Transmission Date: 20060501
  Serious: Yes (Congenital Anomaly)
  Sender: FDA-Public Use
  Company Number: CH-JNJFOC-20051004438

PATIENT
  Age: 1 Day
  Sex: Male

DRUGS (2)
  1. HALDOL [Suspect]
     Indication: DRUG USE FOR UNKNOWN INDICATION
     Dosage: COMMENCED 6 MONTHS PRIOR TO CONCEPTION, TAKEN THROUGHOUT ENTIRE PREGNANCY
  2. TEMESTA [Suspect]
     Indication: DRUG USE FOR UNKNOWN INDICATION
     Dosage: COMMENCED 'SEVERAL YEARS' PRIOR TO CONCEPTION, STOPPED 28 DAYS AFTER CONCEPTION

REACTIONS (1)
  - TALIPES [None]
